FAERS Safety Report 4892193-7 (Version None)
Quarter: 2006Q1

REPORT INFORMATION
  Report Type: 
  Country: None (occurrence: None)
  Receive Date: 20060125
  Receipt Date: 20051207
  Transmission Date: 20060701
  Serious: Yes (Other)
  Sender: FDA-Public Use
  Company Number: C165

PATIENT
  Age: 30 Year
  Sex: Female
  Weight: 97.977 kg

DRUGS (3)
  1. MERETEK UBT KIT (W/ PRANACTIN) [Suspect]
     Indication: HELICOBACTER INFECTION
     Dosage: ONE POUCH PER TEST.
     Dates: start: 20051205
  2. . [Concomitant]
  3. TEGRETOL-XR [Concomitant]

REACTIONS (4)
  - CONVULSION [None]
  - MALAISE [None]
  - PHARMACEUTICAL PRODUCT COMPLAINT [None]
  - VOMITING [None]
